FAERS Safety Report 13880076 (Version 1)
Quarter: 2017Q3

REPORT INFORMATION
  Report Type: Spontaneous
  Country: JP (occurrence: JP)
  Receive Date: 20170818
  Receipt Date: 20170818
  Transmission Date: 20171127
  Serious: Yes (Hospitalization, Other)
  Sender: FDA-Public Use
  Company Number: JP-009507513-1708JPN005070

PATIENT
  Age: 31 Year
  Sex: Female

DRUGS (8)
  1. TACROLIMUS. [Concomitant]
     Active Substance: TACROLIMUS
     Indication: LUPUS NEPHRITIS
  2. BETAMETHASONE. [Suspect]
     Active Substance: BETAMETHASONE
     Indication: LUPUS NEPHRITIS
     Dosage: 0.5 MG, QD (LOW-DOSE)
  3. BETAMETHASONE. [Suspect]
     Active Substance: BETAMETHASONE
     Dosage: 5.0 MG, QD (AFTER 3 DAYS OF THESIGMOID RESECTION SURGERY)
  4. METHYLPREDNISOLONE. [Concomitant]
     Active Substance: METHYLPREDNISOLONE
     Dosage: 3000MG, QD (FOR 3 DAYS) (WHEN LN SYMPTOMS RELAPSED)
  5. TACROLIMUS. [Concomitant]
     Active Substance: TACROLIMUS
     Indication: SYSTEMIC LUPUS ERYTHEMATOSUS
     Dosage: 3 MG, QD
  6. CYCLOPHOSPHAMIDE. [Concomitant]
     Active Substance: CYCLOPHOSPHAMIDE
     Dosage: PULSE THERAPY (WHEN LN SYMPTOMS RELAPSED)
  7. BETAMETHASONE. [Suspect]
     Active Substance: BETAMETHASONE
     Indication: SYSTEMIC LUPUS ERYTHEMATOSUS
     Dosage: 5.0 MG, QD (HIGH-DOSE, WHEN LN SYMPTOMS RELAPSED)
  8. CYCLOPHOSPHAMIDE. [Concomitant]
     Active Substance: CYCLOPHOSPHAMIDE
     Dosage: PULSE THERAPY (AFTER 3 DAYS OF THESIGMOID RESECTION SURGERY)

REACTIONS (2)
  - Cytomegalovirus colitis [Unknown]
  - Intestinal perforation [Unknown]
